FAERS Safety Report 18915241 (Version 1)
Quarter: 2021Q1

REPORT INFORMATION
  Report Type: Spontaneous
  Country: NO (occurrence: NO)
  Receive Date: 20210219
  Receipt Date: 20210219
  Transmission Date: 20210420
  Serious: Yes (Disabling, Other)
  Sender: FDA-Public Use
  Company Number: NO-009507513-2102NOR006492

PATIENT
  Age: 36 Year
  Sex: Female
  Weight: 64 kg

DRUGS (8)
  1. NEXPLANON [Suspect]
     Active Substance: ETONOGESTREL
     Indication: CONTRACEPTION
  2. VITAMIN D (UNSPECIFIED) [Concomitant]
     Active Substance: VITAMIN D NOS
     Dosage: UNK
  3. OMEGA?3 ACIDS [Concomitant]
     Active Substance: OMEGA-3 FATTY ACIDS
     Dosage: UNK
  4. IRON (UNSPECIFIED) [Concomitant]
     Active Substance: IRON
     Dosage: UNK
  5. NEO?MERCAZOLE [Concomitant]
     Active Substance: CARBIMAZOLE
     Indication: HYPERTHYROIDISM
     Dosage: UNK
     Route: 048
     Dates: start: 20210127
  6. SELENIUM (UNSPECIFIED) [Concomitant]
     Active Substance: SELENIUM
     Dosage: UNK
  7. PROBIOTICS (UNSPECIFIED) [Concomitant]
     Active Substance: PROBIOTICS NOS
     Dosage: UNK
  8. NEXPLANON [Suspect]
     Active Substance: ETONOGESTREL
     Indication: MENSTRUAL CYCLE MANAGEMENT
     Dosage: 1 TOTAL
     Route: 058
     Dates: start: 201901, end: 202006

REACTIONS (7)
  - Menstrual disorder [Recovered/Resolved]
  - Burnout syndrome [Recovering/Resolving]
  - Stress [Recovering/Resolving]
  - Hyperthyroidism [Unknown]
  - Hypothyroidism [Unknown]
  - Menorrhagia [Unknown]
  - Asthenia [Unknown]

NARRATIVE: CASE EVENT DATE: 201909
